FAERS Safety Report 9858223 (Version 1)
Quarter: 2014Q1

REPORT INFORMATION
  Report Type: Spontaneous
  Country: US (occurrence: None)
  Receive Date: 20140130
  Receipt Date: 20140130
  Transmission Date: 20141002
  Serious: Yes (Other)
  Sender: FDA-Public Use
  Company Number: None

PATIENT
  Age: 66 None
  Sex: Female

DRUGS (1)
  1. ZETIA [Suspect]
     Indication: HYPERLIPIDAEMIA
     Route: 048
     Dates: start: 20140103, end: 20140105

REACTIONS (4)
  - Middle insomnia [None]
  - Pain [None]
  - Nausea [None]
  - Diarrhoea [None]
